FAERS Safety Report 7775976-5 (Version None)
Quarter: 2011Q3

REPORT INFORMATION
  Report Type: 
  Country: None (occurrence: None)
  Receive Date: 20110923
  Receipt Date: 20110912
  Transmission Date: 20111222
  Serious: Yes (Hospitalization)
  Sender: FDA-Public Use
  Company Number: US-RB-032293-11

PATIENT
  Age: 53 Year
  Sex: Male

DRUGS (1)
  1. SUBOXONE [Suspect]
     Indication: PRODUCT USED FOR UNKNOWN INDICATION
     Dosage: DOSING DETAILS UNKNOWN.
     Route: 060

REACTIONS (9)
  - HYPOAESTHESIA [None]
  - PYREXIA [None]
  - NERVE INJURY [None]
  - INSOMNIA [None]
  - NASOPHARYNGITIS [None]
  - DRUG WITHDRAWAL SYNDROME [None]
  - MYOCARDIAL INFARCTION [None]
  - BLOOD PRESSURE INCREASED [None]
  - UNDERDOSE [None]
